FAERS Safety Report 7435395-8 (Version None)
Quarter: 2011Q2

REPORT INFORMATION
  Report Type: 
  Country: None (occurrence: None)
  Receive Date: 20110425
  Receipt Date: 20100908
  Transmission Date: 20111010
  Serious: Yes (Other)
  Sender: FDA-Public Use
  Company Number: US-BAYER-201018580NA

PATIENT
  Age: 25 Year
  Sex: Female
  Weight: 95 kg

DRUGS (7)
  1. AUGMENTIN [Concomitant]
  2. MOTRIN [Concomitant]
     Indication: ANALGESIC THERAPY
     Dosage: UNK
  3. PERCOCET [Concomitant]
     Indication: ABDOMINAL PAIN
  4. YAZ [Suspect]
     Indication: PRODUCT USED FOR UNKNOWN INDICATION
     Route: 048
  5. REGLAN [Concomitant]
  6. VICODIN [Concomitant]
  7. ACETAMINOPHEN [Concomitant]
     Indication: ANALGESIC THERAPY

REACTIONS (6)
  - VOMITING [None]
  - DIARRHOEA [None]
  - NAUSEA [None]
  - PAIN [None]
  - ABDOMINAL PAIN [None]
  - CHOLELITHIASIS [None]
